FAERS Safety Report 12880647 (Version 4)
Quarter: 2017Q2

REPORT INFORMATION
  Report Type: Spontaneous
  Country: JP (occurrence: JP)
  Receive Date: 20161025
  Receipt Date: 20170519
  Transmission Date: 20170830
  Serious: Yes (Disabling, Other)
  Sender: FDA-Public Use
  Company Number: JP-GLAXOSMITHKLINE-JP2016JPN152577

PATIENT
  Age: 62 Year
  Sex: Male
  Weight: 47 kg

DRUGS (8)
  1. HEPSERA [Suspect]
     Active Substance: ADEFOVIR DIPIVOXIL
     Dosage: UNK, QOD
     Route: 048
     Dates: start: 20140922, end: 20150828
  2. HEPSERA [Suspect]
     Active Substance: ADEFOVIR DIPIVOXIL
     Indication: CHRONIC HEPATITIS B
     Dosage: 10 MG, 1D
     Route: 048
     Dates: start: 20130215
  3. WARFARIN (JAPANESE TRADENAME) [Concomitant]
     Dosage: 3 MG, QD
  4. THEOPHYLLINE [Concomitant]
     Active Substance: THEOPHYLLINE ANHYDROUS
     Dosage: 1 DF, QD
  5. ZEFIX [Suspect]
     Active Substance: LAMIVUDINE
     Indication: CHRONIC HEPATITIS B
     Dosage: 100 MG, QD
     Route: 048
     Dates: start: 20001226, end: 20150827
  6. VASOLAN [Concomitant]
     Active Substance: VERAPAMIL HYDROCHLORIDE
     Dosage: 1 DF, TID
  7. SAWATENE [Concomitant]
     Active Substance: CARBOCYSTEINE
     Dosage: 1 DF, TID
  8. SYMBICORT [Concomitant]
     Active Substance: BUDESONIDE\FORMOTEROL FUMARATE DIHYDRATE
     Dosage: 2 DF, BID

REACTIONS (6)
  - Renal impairment [Not Recovered/Not Resolved]
  - Hepatitis B DNA increased [Unknown]
  - Proteinuria [Not Recovered/Not Resolved]
  - Drug resistance [Unknown]
  - Renal tubular disorder [Unknown]
  - Liver disorder [Unknown]

NARRATIVE: CASE EVENT DATE: 20130118
